FAERS Safety Report 11513067 (Version 1)
Quarter: 2015Q3

REPORT INFORMATION
  Report Type: Spontaneous
  Country: US (occurrence: None)
  Receive Date: 20150915
  Receipt Date: 20150915
  Transmission Date: 20151125
  Serious: Yes (Other)
  Sender: FDA-Public Use
  Company Number: None

PATIENT
  Age: 36 Year
  Sex: Female
  Weight: 70.31 kg

DRUGS (3)
  1. MIRENA [Suspect]
     Active Substance: LEVONORGESTREL
  2. CARBATROL [Concomitant]
     Active Substance: CARBAMAZEPINE
  3. VNS [Concomitant]

REACTIONS (2)
  - Night sweats [None]
  - Fungal infection [None]
